FAERS Safety Report 6127306-2 (Version None)
Quarter: 2009Q1

REPORT INFORMATION
  Report Type: 
  Country: None (occurrence: None)
  Receive Date: 20090319
  Receipt Date: 20090304
  Transmission Date: 20090719
  Serious: Yes (Hospitalization)
  Sender: FDA-Public Use
  Company Number: US025516

PATIENT
  Age: 62 Year
  Sex: Male
  Weight: 73 kg

DRUGS (3)
  1. TREANDA [Suspect]
     Indication: NON-HODGKIN'S LYMPHOMA
     Dosage: D1 AND D2 Q35 DAYS (90 DAYS MG/M2),INTRAVENOUS (NOT OTHERWISE SPECIFIED)
     Route: 042
     Dates: start: 20090224
  2. VELCADE [Concomitant]
  3. RITUXMIAB (RITUXIMAB) [Concomitant]

REACTIONS (12)
  - ALPHA HAEMOLYTIC STREPTOCOCCAL INFECTION [None]
  - BACTERIAL SEPSIS [None]
  - COLLAPSE OF LUNG [None]
  - DEHYDRATION [None]
  - HYDRONEPHROSIS [None]
  - HYPOTENSION [None]
  - INFECTION [None]
  - LYMPHOCYTE COUNT DECREASED [None]
  - PERICARDIAL EFFUSION [None]
  - PLEURAL EFFUSION [None]
  - RETROPERITONEAL LYMPHADENOPATHY [None]
  - SINUS TACHYCARDIA [None]
